FAERS Safety Report 8224799-1 (Version None)
Quarter: 2012Q1

REPORT INFORMATION
  Report Type: 
  Country: None (occurrence: None)
  Receive Date: 20120319
  Receipt Date: 20120312
  Transmission Date: 20120608
  Serious: Yes (Other)
  Sender: FDA-Public Use
  Company Number: 2012MA003338

PATIENT
  Age: 25 Year
  Sex: Male

DRUGS (3)
  1. METHYLPREDNISOLONE [Concomitant]
  2. RANITIDINE [Suspect]
     Indication: PROPHYLAXIS AGAINST GASTROINTESTINAL ULCER
     Dosage: 75 MG
  3. ACECLOFENAC (ACECLOFENAC) [Suspect]
     Dosage: 100 MG

REACTIONS (5)
  - RESPIRATORY ARREST [None]
  - TYPE I HYPERSENSITIVITY [None]
  - LOSS OF CONSCIOUSNESS [None]
  - PULSE ABSENT [None]
  - ANAPHYLACTIC REACTION [None]
